FAERS Safety Report 13365773 (Version 1)
Quarter: 2017Q1

REPORT INFORMATION
  Report Type: Spontaneous
  Country: US (occurrence: US)
  Receive Date: 20170323
  Receipt Date: 20170323
  Transmission Date: 20170429
  Serious: No
  Sender: FDA-Public Use
  Company Number: US-ALLERGAN-2016-002131

PATIENT
  Age: 61 Year
  Sex: Female
  Weight: 58.96 kg

DRUGS (4)
  1. ESTRACE [Suspect]
     Active Substance: ESTRADIOL
     Indication: BLOOD OESTROGEN DECREASED
  2. CLONAZEPAM. [Concomitant]
     Active Substance: CLONAZEPAM
     Indication: ANXIETY
     Route: 048
  3. SYNTHROID [Concomitant]
     Active Substance: LEVOTHYROXINE SODIUM
     Indication: HYPOTHYROIDISM
     Dosage: UNK
     Route: 048
  4. ESTRACE [Suspect]
     Active Substance: ESTRADIOL
     Indication: PROGESTERONE DECREASED
     Dosage: 1/2 A SAMPLE TUBE/PER NIGHT
     Route: 067
     Dates: start: 20160912

REACTIONS (2)
  - Vulvovaginal burning sensation [Unknown]
  - Product use issue [Unknown]

NARRATIVE: CASE EVENT DATE: 20160912
